FAERS Safety Report 9921030 (Version 1)
Quarter: 2014Q1

REPORT INFORMATION
  Report Type: Report from Study
  Country: GB (occurrence: GB)
  Receive Date: 20140225
  Receipt Date: 20140225
  Transmission Date: 20141002
  Serious: Yes (Death, Other)
  Sender: FDA-Public Use
  Company Number: GB-ROCHE-1354982

PATIENT
  Sex: Male

DRUGS (1)
  1. RITUXIMAB [Suspect]
     Indication: RHEUMATOID ARTHRITIS
     Route: 065
     Dates: start: 20091115

REACTIONS (4)
  - Myocardial ischaemia [Fatal]
  - Osteoporotic fracture [Unknown]
  - Haemorrhage [Unknown]
  - Nephritic syndrome [Unknown]
